FAERS Safety Report 8455362-5 (Version None)
Quarter: 2012Q2

REPORT INFORMATION
  Report Type: 
  Country: None (occurrence: None)
  Receive Date: 20120614
  Receipt Date: 20120607
  Transmission Date: 20120825
  Serious: Yes (Death, Hospitalization)
  Sender: FDA-Public Use
  Company Number: 2012HGS-003672

PATIENT
  Age: 29 Year
  Sex: Female
  Weight: 81.6 kg

DRUGS (18)
  1. PREDNISONE TAB [Concomitant]
  2. CALCIUM CARBONATE [Concomitant]
  3. GLUCOSAMINE (GLUCOSAMINE SULFATE) [Concomitant]
  4. ALBUTEROL [Concomitant]
  5. ACETAMINOPHEN [Concomitant]
  6. DOCUSATE SODIUM [Concomitant]
  7. OXYCODONE HCL [Concomitant]
  8. SAVELLA [Concomitant]
  9. FLOVENT [Concomitant]
  10. TRAMADOL HCL [Concomitant]
  11. IMITREX [Concomitant]
  12. LYRICA [Concomitant]
  13. PATANOL [Concomitant]
  14. CYCLOPHOSPHAMIDE [Concomitant]
  15. CELLCEPT [Concomitant]
  16. MULTIVITAMIN (VIGRAN) (ERGOCALCIFEROL, ASCORBIC ACID, PYRIDOXINE HYDRO [Concomitant]
  17. METHOTREXATE [Concomitant]
  18. BENLYSTA [Suspect]
     Indication: SYSTEMIC LUPUS ERYTHEMATOSUS
     Dosage: 1 IN 28 D, INTRAVENOUS DRIP
     Route: 041
     Dates: start: 20120127, end: 20120420

REACTIONS (4)
  - CARDIOGENIC SHOCK [None]
  - CARDIAC FAILURE CONGESTIVE [None]
  - MULTI-ORGAN FAILURE [None]
  - APHASIA [None]
